FAERS Safety Report 8547882-X (Version None)
Quarter: 2012Q3

REPORT INFORMATION
  Report Type: 
  Country: None (occurrence: None)
  Receive Date: 20120728
  Receipt Date: 20120720
  Transmission Date: 20120928
  Serious: Yes (Death, Hospitalization)
  Sender: FDA-Public Use
  Company Number: CN-009507513-1206USA04731

PATIENT

DRUGS (12)
  1. CLOPIDOGREL [Concomitant]
     Dosage: 75 MG, QD
     Dates: start: 20110211, end: 20110506
  2. SIMVASTATIN [Concomitant]
     Dosage: 20 MG, QD
     Dates: start: 20110211, end: 20110426
  3. PRAZOSIN [Concomitant]
     Dosage: 0.5 MG, QD
     Dates: start: 20110427, end: 20110428
  4. OMEPRAZOLE [Concomitant]
     Dosage: 40 MG, QD
     Dates: start: 20110429, end: 20110501
  5. COZAAR [Suspect]
     Indication: PRODUCT USED FOR UNKNOWN INDICATION
     Dosage: 50 MG, QD
     Route: 048
     Dates: start: 20110211, end: 20110425
  6. ATORVASTATIN CALCIUM [Concomitant]
     Dosage: 400 MG, QD
     Dates: start: 20110425, end: 20120428
  7. DILTIAZEM HCL [Concomitant]
     Dosage: 20 MG, QD
     Dates: start: 20110501, end: 20110505
  8. PLACEBO [Suspect]
     Indication: CARDIOVASCULAR EVENT PROPHYLAXIS
     Dosage: UNK UNK, QD
     Route: 048
     Dates: start: 20110303, end: 20110407
  9. NIFEDIPINE [Concomitant]
     Dosage: 30 MG, ONCE
     Dates: start: 20110425, end: 20110425
  10. ASPIRIN [Concomitant]
     Dosage: 100 MG, QD
     Dates: start: 20110211, end: 20110506
  11. AMLODIPINE [Concomitant]
     Dosage: 5 MG, QD
     Dates: start: 20110211, end: 20110506
  12. TORSEMIDE [Concomitant]
     Dosage: 40 MG, QD
     Dates: start: 20110425, end: 20110428

REACTIONS (2)
  - CEREBRAL INFARCTION [None]
  - RENAL FAILURE ACUTE [None]
